FAERS Safety Report 20108940 (Version 1)
Quarter: 2021Q4

REPORT INFORMATION
  Report Type: Spontaneous
  Country: FR (occurrence: FR)
  Receive Date: 20211124
  Receipt Date: 20211124
  Transmission Date: 20220303
  Serious: Yes (Hospitalization)
  Sender: FDA-Public Use
  Company Number: None

PATIENT
  Age: 82 Year
  Sex: Female
  Weight: 45 kg

DRUGS (1)
  1. CLARITHROMYCIN [Suspect]
     Active Substance: CLARITHROMYCIN
     Indication: Cough
     Dosage: 500 MILLIGRAM, QD
     Route: 048
     Dates: start: 20210629, end: 20210703

REACTIONS (1)
  - Aphasia [Recovering/Resolving]

NARRATIVE: CASE EVENT DATE: 20210702
